FAERS Safety Report 11766057 (Version 1)
Quarter: 2015Q4

REPORT INFORMATION
  Report Type: Spontaneous
  Country: CA (occurrence: CA)
  Receive Date: 20151122
  Receipt Date: 20151122
  Transmission Date: 20160304
  Serious: Yes (Death)
  Sender: FDA-Public Use
  Company Number: CA-TEVA-610807ACC

PATIENT
  Age: 67 Year
  Sex: Female
  Weight: 156 kg

DRUGS (12)
  1. AMITRIPTYLINE [Concomitant]
     Active Substance: AMITRIPTYLINE
  2. FUROSEMIDE. [Concomitant]
     Active Substance: FUROSEMIDE
  3. GLICLAZIDE [Concomitant]
     Active Substance: GLICLAZIDE
  4. CODEINE [Suspect]
     Active Substance: CODEINE
     Indication: PRODUCT USED FOR UNKNOWN INDICATION
     Route: 048
  5. CEPHALEXIN. [Concomitant]
     Active Substance: CEPHALEXIN
  6. CLONAZEPAM. [Concomitant]
     Active Substance: CLONAZEPAM
  7. FERROUS FUMARATE [Concomitant]
     Active Substance: FERROUS FUMARATE
  8. HUMULIN N (CARTRIDGE) [Concomitant]
     Route: 058
  9. SYNTHROID [Concomitant]
     Active Substance: LEVOTHYROXINE SODIUM
  10. CYCLOBENZAPRINE [Suspect]
     Active Substance: CYCLOBENZAPRINE
     Indication: PRODUCT USED FOR UNKNOWN INDICATION
     Route: 048
  11. DICLOFENAC [Concomitant]
     Active Substance: DICLOFENAC
  12. GABAPENTIN. [Concomitant]
     Active Substance: GABAPENTIN

REACTIONS (1)
  - Toxicity to various agents [Fatal]
